FAERS Safety Report 5324660-6 (Version None)
Quarter: 2007Q2

REPORT INFORMATION
  Report Type: 
  Country: None (occurrence: None)
  Receive Date: 20070509
  Receipt Date: 20070423
  Transmission Date: 20071010
  Serious: Yes (Life-Threatening, Hospitalization)
  Sender: FDA-Public Use
  Company Number: DSA_29827_2007

PATIENT
  Sex: Female

DRUGS (3)
  1. TAVOR /00273201/ (TAVOR) 2.5 MG [Suspect]
     Dosage: 125 MG 1X ORAL
     Route: 048
     Dates: start: 20070422, end: 20070422
  2. APONAL (APONAL) 1 DF [Suspect]
     Dosage: 50 MG 1X ORAL
     Route: 048
     Dates: start: 20040422, end: 20070422
  3. GLIANIMON (GLIANIMON) 1 DF [Suspect]
     Dosage: 6 MG 1X ORAL
     Route: 048
     Dates: start: 20070422, end: 20070422

REACTIONS (5)
  - BOWEL SOUNDS ABNORMAL [None]
  - DYSARTHRIA [None]
  - FATIGUE [None]
  - INTENTIONAL OVERDOSE [None]
  - SUICIDE ATTEMPT [None]
